FAERS Safety Report 5328540-1 (Version None)
Quarter: 2007Q2

REPORT INFORMATION
  Report Type: 
  Country: None (occurrence: None)
  Receive Date: 20070518
  Receipt Date: 20070517
  Transmission Date: 20071010
  Serious: Yes (Hospitalization)
  Sender: FDA-Public Use
  Company Number: GB-BRISTOL-MYERS SQUIBB COMPANY-13783535

PATIENT
  Age: 84 Year
  Sex: Male

DRUGS (7)
  1. ACETYLSALICYLIC ACID SRT [Suspect]
     Indication: ATRIAL FIBRILLATION
     Route: 048
     Dates: start: 20040611, end: 20070502
  2. HYDROXYCARBAMIDE [Suspect]
     Indication: POLYCYTHAEMIA VERA
     Route: 048
     Dates: start: 20050101, end: 20070502
  3. BISOPROLOL FUMARATE [Concomitant]
     Route: 048
  4. FELODIPINE [Concomitant]
     Route: 048
  5. FUROSEMIDE [Concomitant]
     Route: 048
  6. LANSOPRAZOLE [Concomitant]
     Route: 048
  7. LISINOPRIL [Concomitant]
     Route: 048

REACTIONS (4)
  - DIZZINESS [None]
  - PALLOR [None]
  - PANCYTOPENIA [None]
  - RECTAL HAEMORRHAGE [None]
